FAERS Safety Report 4504343-2 (Version None)
Quarter: 2004Q4

REPORT INFORMATION
  Report Type: 
  Country: None (occurrence: None)
  Receive Date: 20041115
  Receipt Date: 20041103
  Transmission Date: 20050328
  Serious: Yes (Disabling)
  Sender: FDA-Public Use
  Company Number: HQWYE268105NOV04

PATIENT
  Sex: Male

DRUGS (4)
  1. DIMETAPP [Suspect]
     Indication: HYPERSENSITIVITY
  2. DIMETAPP [Suspect]
     Indication: NASOPHARYNGITIS
  3. ALKA-SELTZER PLUS (ACETYLSALICYLIC ACID/CHLORPHENAMINE MALEATE/PHENYLP [Suspect]
     Indication: HYPERSENSITIVITY
  4. ALKA-SELTZER PLUS (ACETYLSALICYLIC ACID/CHLORPHENAMINE MALEATE/PHENYLP [Suspect]
     Indication: NASOPHARYNGITIS

REACTIONS (1)
  - ISCHAEMIC STROKE [None]
